FAERS Safety Report 10184109 (Version 1)
Quarter: 2014Q2

REPORT INFORMATION
  Report Type: Spontaneous
  Country: US (occurrence: US)
  Receive Date: 20140520
  Receipt Date: 20140520
  Transmission Date: 20141212
  Serious: No
  Sender: FDA-Public Use
  Company Number: US-ASTRAZENECA-2013SE84943

PATIENT
  Sex: Female

DRUGS (1)
  1. BUDESONIDE [Suspect]
     Indication: COLITIS
     Route: 048

REACTIONS (2)
  - Colitis [Unknown]
  - Drug ineffective [Unknown]
